FAERS Safety Report 5892428-8 (Version None)
Quarter: 2008Q3

REPORT INFORMATION
  Report Type: 
  Country: None (occurrence: None)
  Receive Date: 20080923
  Receipt Date: 20080918
  Transmission Date: 20090109
  Serious: Yes (Death)
  Sender: FDA-Public Use
  Company Number: US-BRISTOL-MYERS SQUIBB COMPANY-13853528

PATIENT
  Age: 54 Year
  Sex: Female
  Weight: 107 kg

DRUGS (6)
  1. ORENCIA [Suspect]
     Indication: RHEUMATOID ARTHRITIS
     Dosage: START DATE : UNK;LAST INF DATE:03JUL07, 4 VIALS= 1 GRAM
     Route: 042
     Dates: end: 20070703
  2. FOLIC ACID [Concomitant]
  3. METHOTREXATE [Concomitant]
  4. PREDNISOLONE [Concomitant]
  5. ACETAMINOPHEN [Concomitant]
  6. CELECOXIB [Concomitant]

REACTIONS (1)
  - BLASTOMYCOSIS [None]
